FAERS Safety Report 9915662 (Version 1)
Quarter: 2014Q1

REPORT INFORMATION
  Report Type: Spontaneous
  Country: US (occurrence: None)
  Receive Date: 20140219
  Receipt Date: 20140219
  Transmission Date: 20141002
  Serious: Yes (Hospitalization)
  Sender: FDA-Public Use
  Company Number: None

PATIENT
  Age: 90 Year
  Sex: Female

DRUGS (4)
  1. GLYBURIDE [Suspect]
     Indication: DIABETES MELLITUS
     Route: 048
  2. FENOFIBRATE [Concomitant]
  3. METOPROLOL SUCCINATE [Concomitant]
  4. ASA [Concomitant]

REACTIONS (3)
  - Hypoglycaemia [None]
  - Hypoaesthesia [None]
  - Malaise [None]
